FAERS Safety Report 17514343 (Version 1)
Quarter: 2020Q1

REPORT INFORMATION
  Report Type: Spontaneous
  Country: ES (occurrence: ES)
  Receive Date: 20200309
  Receipt Date: 20200309
  Transmission Date: 20200409
  Serious: Yes (Death, Other)
  Sender: FDA-Public Use
  Company Number: ES-AUROBINDO-AUR-APL-2020-011324

PATIENT
  Age: 19 Year
  Sex: Female

DRUGS (2)
  1. ETINILESTRADIOL/DROSPIRENONE 0.03/3 MG FILM-COATED TABLETS [Suspect]
     Active Substance: DROSPIRENONE\ETHINYL ESTRADIOL
     Indication: MENSTRUATION IRREGULAR
     Dosage: UNK
     Route: 048
     Dates: start: 201910, end: 201912
  2. PROGEFFIK [Suspect]
     Active Substance: PROGESTERONE
     Indication: MENSTRUATION IRREGULAR
     Dosage: UNK (200)
     Route: 065
     Dates: start: 201910, end: 201912

REACTIONS (1)
  - Pulmonary embolism [Fatal]

NARRATIVE: CASE EVENT DATE: 20191227
